FAERS Safety Report 25238503 (Version 1)
Quarter: 2025Q2

REPORT INFORMATION
  Report Type: Spontaneous
  Country: US (occurrence: US)
  Receive Date: 20250425
  Receipt Date: 20250425
  Transmission Date: 20250716
  Serious: Yes (Hospitalization, Other)
  Sender: NOVITIUM PHARMA
  Company Number: US-NOVITIUMPHARMA-2025USNVP00969

PATIENT
  Age: 63 Year
  Sex: Female

DRUGS (1)
  1. PREDNISONE [Suspect]
     Active Substance: PREDNISONE
     Indication: Asthma-chronic obstructive pulmonary disease overlap syndrome

REACTIONS (4)
  - Acute respiratory failure [Unknown]
  - Toxic encephalopathy [Unknown]
  - Septic shock [Unknown]
  - Strongyloidiasis [Unknown]
